FAERS Safety Report 10067501 (Version 1)
Quarter: 2014Q2

REPORT INFORMATION
  Report Type: Spontaneous
  Country: US (occurrence: None)
  Receive Date: 20140408
  Receipt Date: 20140408
  Transmission Date: 20141212
  Serious: Yes (Hospitalization)
  Sender: FDA-Public Use
  Company Number: None

PATIENT
  Age: 74 Year
  Sex: Female
  Weight: 61 kg

DRUGS (8)
  1. GAZYVA [Suspect]
     Indication: CHRONIC LYMPHOCYTIC LEUKAEMIA
     Dosage: 100 MG ?IV ON DAY 1 ?INTRAVENOUS
     Route: 042
     Dates: start: 20140402, end: 20140402
  2. CHLORAMBUCIL [Suspect]
     Indication: CHRONIC LYMPHOCYTIC LEUKAEMIA
     Dosage: 31 MG ?ON DAY 1?ORAL
     Route: 048
     Dates: start: 20140402, end: 20140402
  3. OMEPRAZOLE [Concomitant]
  4. ATENOLOL [Concomitant]
  5. ESCITALOPRAM [Concomitant]
  6. LOVASTATIN [Concomitant]
  7. ONDANSETRON ODT [Concomitant]
  8. TOPIRAMATE [Concomitant]

REACTIONS (1)
  - Abdominal pain [None]
